FAERS Safety Report 26107406 (Version 1)
Quarter: 2025Q4

REPORT INFORMATION
  Report Type: Spontaneous
  Country: GB (occurrence: GB)
  Receive Date: 20251201
  Receipt Date: 20251201
  Transmission Date: 20260118
  Serious: Yes (Other)
  Sender: REGENERON
  Company Number: GB-ULTRAGENYX PHARMACEUTICAL INC.-GB-UGX-25-02330

PATIENT
  Age: 40 Year
  Sex: Male

DRUGS (1)
  1. EVKEEZA [Suspect]
     Active Substance: EVINACUMAB-DGNB
     Indication: Product used for unknown indication
     Dosage: UNK, FORMULATION: UNKNOWN

REACTIONS (1)
  - Atrial thrombosis [Unknown]

NARRATIVE: CASE EVENT DATE: 20251001
